FAERS Safety Report 23488098 (Version 1)
Quarter: 2024Q1

REPORT INFORMATION
  Report Type: Spontaneous
  Country: US (occurrence: US)
  Receive Date: 20240206
  Receipt Date: 20240206
  Transmission Date: 20240410
  Serious: Yes (Other)
  Sender: FDA-Public Use
  Company Number: US-002147023-NVSC2024US023384

PATIENT

DRUGS (1)
  1. PIQRAY [Suspect]
     Active Substance: ALPELISIB
     Indication: Lung neoplasm malignant
     Dosage: UNK (FOR ONE YEAR)
     Route: 065

REACTIONS (2)
  - Haemoptysis [Unknown]
  - Dyspnoea [Unknown]
